FAERS Safety Report 12989596 (Version 2)
Quarter: 2017Q2

REPORT INFORMATION
  Report Type: Spontaneous
  Country: US (occurrence: US)
  Receive Date: 20161201
  Receipt Date: 20170519
  Transmission Date: 20170830
  Serious: Yes (Other)
  Sender: FDA-Public Use
  Company Number: US-BRISTOL-MYERS SQUIBB COMPANY-BMS-2016-100040

PATIENT

DRUGS (1)
  1. ABILIFY [Suspect]
     Active Substance: ARIPIPRAZOLE
     Indication: AFFECTIVE DISORDER
     Dosage: 1 DF, UNK
     Route: 065
     Dates: start: 2008, end: 2010

REACTIONS (8)
  - Suicide attempt [Unknown]
  - Psychosexual disorder [Unknown]
  - Gambling [Unknown]
  - Obsessive-compulsive disorder [Unknown]
  - Attention deficit/hyperactivity disorder [Unknown]
  - Suicidal ideation [Unknown]
  - Hypersexuality [Unknown]
  - Product use in unapproved indication [Unknown]

NARRATIVE: CASE EVENT DATE: 2008
